FAERS Safety Report 4994219-9 (Version None)
Quarter: 2006Q2

REPORT INFORMATION
  Report Type: 
  Country: None (occurrence: None)
  Receive Date: 20060503
  Receipt Date: 20060420
  Transmission Date: 20061013
  Serious: Yes (Death)
  Sender: FDA-Public Use
  Company Number: 048

PATIENT
  Sex: Female

DRUGS (1)
  1. FAZACLO ODT [Suspect]
     Dosage: 400 MG PO DAILY
     Route: 048
     Dates: start: 20041001, end: 20060315

REACTIONS (1)
  - NEOPLASM MALIGNANT [None]
